FAERS Safety Report 22315028 (Version 1)
Quarter: 2023Q2

REPORT INFORMATION
  Report Type: Spontaneous
  Country: US (occurrence: None)
  Receive Date: 20230511
  Receipt Date: 20230511
  Transmission Date: 20230722
  Serious: Yes (Life-Threatening, Hospitalization)
  Sender: FDA-Public Use
  Company Number: None

PATIENT
  Age: 72 Year
  Sex: Female
  Weight: 73.8 kg

DRUGS (1)
  1. OCRELIZUMAB [Suspect]
     Active Substance: OCRELIZUMAB
     Indication: Multiple sclerosis
     Dosage: OTHER FREQUENCY : Q 6 MONTHS;?
     Route: 041
     Dates: start: 20221220, end: 20221220

REACTIONS (7)
  - Agranulocytosis [None]
  - Pyrexia [None]
  - Malaise [None]
  - Cough [None]
  - Chest X-ray abnormal [None]
  - Blood culture positive [None]
  - Pseudomonas infection [None]

NARRATIVE: CASE EVENT DATE: 20230504
